FAERS Safety Report 21290782 (Version 1)
Quarter: 2022Q3

REPORT INFORMATION
  Report Type: Spontaneous
  Country: US (occurrence: US)
  Receive Date: 20220903
  Receipt Date: 20220903
  Transmission Date: 20221026
  Serious: Yes (Other)
  Sender: FDA-Public Use
  Company Number: US-SA-SAC20220831000079

PATIENT
  Sex: Female

DRUGS (2)
  1. ZANTAC [Suspect]
     Active Substance: RANITIDINE HYDROCHLORIDE
     Dosage: PRESCRIPTION ZANTAC FROM APPROXIMATELY 1995 TO 2015
     Route: 048
     Dates: start: 1995, end: 2015
  2. RANITIDINE [Suspect]
     Active Substance: RANITIDINE
     Dosage: PRESCRIPTION RANITIDINE FROM APPROXIMATELY 1995 TO 2015
     Route: 048
     Dates: start: 1995, end: 2015

REACTIONS (3)
  - Breast cancer female [Unknown]
  - Uterine cancer [Unknown]
  - Skin cancer [Unknown]
